FAERS Safety Report 5728757-8 (Version None)
Quarter: 2008Q2

REPORT INFORMATION
  Report Type: 
  Country: None (occurrence: None)
  Receive Date: 20080506
  Receipt Date: 20080429
  Transmission Date: 20081010
  Serious: Yes (Death, Hospitalization)
  Sender: FDA-Public Use
  Company Number: B0516934A

PATIENT
  Age: 50 Year
  Sex: Male

DRUGS (2)
  1. ARIXTRA [Suspect]
     Indication: PHLEBITIS
     Dosage: 7.5MG PER DAY
     Route: 065
     Dates: start: 20080201, end: 20080408
  2. PREVISCAN [Suspect]
     Indication: PHLEBITIS
     Route: 048
     Dates: start: 20080101, end: 20080101

REACTIONS (5)
  - CARDIOPULMONARY FAILURE [None]
  - DEEP VEIN THROMBOSIS [None]
  - DRUG INEFFECTIVE [None]
  - GENERAL PHYSICAL HEALTH DETERIORATION [None]
  - PULMONARY EMBOLISM [None]
